FAERS Safety Report 6409730-3 (Version None)
Quarter: 2009Q4

REPORT INFORMATION
  Report Type: 
  Country: None (occurrence: None)
  Receive Date: 20091022
  Receipt Date: 20091013
  Transmission Date: 20100525
  Serious: Yes (Other)
  Sender: FDA-Public Use
  Company Number: PHHY2009BR42305

PATIENT
  Sex: Female
  Weight: 62 kg

DRUGS (4)
  1. EXELON [Suspect]
     Indication: AMNESIA
     Dosage: 2 MG, BID
     Route: 048
     Dates: start: 20090701
  2. BROMOPRIDE [Concomitant]
     Dosage: 10 MG,1 CAPSULE  TID
  3. GERIATON [Concomitant]
     Dosage: ONE DRAGEE ONCE A DAY
  4. ADTIL [Concomitant]
     Dosage: FOUR DROPS ONCE A DAY

REACTIONS (3)
  - HAEMATOCHEZIA [None]
  - RECTAL HAEMORRHAGE [None]
  - VENOUS OCCLUSION [None]
